FAERS Safety Report 8989657 (Version 2)
Quarter: 2013Q1

REPORT INFORMATION
  Report Type: Spontaneous
  Country: NL (occurrence: NL)
  Receive Date: 20121228
  Receipt Date: 20130112
  Transmission Date: 20140127
  Serious: Yes (Other)
  Sender: FDA-Public Use
  Company Number: NL-AMGEN-NLDSP2012083177

PATIENT
  Age: 82 Year
  Sex: Male

DRUGS (12)
  1. ARANESP [Suspect]
     Indication: PRODUCT USED FOR UNKNOWN INDICATION
     Dosage: 150 MUG, Q2WK
     Route: 058
  2. INSULIN [Concomitant]
  3. GLIMEPIRIDE [Concomitant]
  4. BUMETANIDE [Concomitant]
  5. ACENOCOUMAROL [Concomitant]
  6. BISOPROLOL [Concomitant]
  7. SPIRIVA [Concomitant]
  8. TAMSULOSIN [Concomitant]
  9. SERETIDE [Concomitant]
  10. TEMAZEPAM [Concomitant]
  11. ETALPHA [Concomitant]
  12. FLECAINIDE [Concomitant]

REACTIONS (1)
  - Chronic myeloid leukaemia [Unknown]
